FAERS Safety Report 23971538 (Version 1)
Quarter: 2024Q2

REPORT INFORMATION
  Report Type: Spontaneous
  Country: US (occurrence: US)
  Receive Date: 20240613
  Receipt Date: 20240613
  Transmission Date: 20240716
  Serious: Yes (Other)
  Sender: FDA-Public Use
  Company Number: US-BRISTOL-MYERS SQUIBB COMPANY-2024-091764

PATIENT
  Age: 77 Year
  Sex: Female

DRUGS (3)
  1. ELIQUIS [Suspect]
     Active Substance: APIXABAN
     Indication: Thrombosis
  2. ROSUVASTATIN [Concomitant]
     Active Substance: ROSUVASTATIN
     Indication: Blood cholesterol
  3. EZETIMIBE [Concomitant]
     Active Substance: EZETIMIBE
     Indication: Blood cholesterol

REACTIONS (3)
  - Atrioventricular block [Unknown]
  - Amyloidosis [Unknown]
  - Auditory disorder [Unknown]
